FAERS Safety Report 4472817-9 (Version None)
Quarter: 2004Q4

REPORT INFORMATION
  Report Type: 
  Country: None (occurrence: None)
  Receive Date: 20041008
  Receipt Date: 20040930
  Transmission Date: 20050328
  Serious: Yes (Other)
  Sender: FDA-Public Use
  Company Number: 2004-09-0895

PATIENT
  Age: 60 Year
  Sex: Male
  Weight: 70 kg

DRUGS (4)
  1. AERIUS (DESLORATADINE) 'LIKE CLARINEX' [Suspect]
     Indication: ECZEMA
  2. AERIUS (DESLORATADINE) 'LIKE CLARINEX' [Suspect]
     Indication: HYPERSENSITIVITY
  3. OMEPRAZOLE [Concomitant]
  4. PLAVIX [Concomitant]

REACTIONS (2)
  - ELECTROCARDIOGRAM QT PROLONGED [None]
  - SINUS BRADYCARDIA [None]
